FAERS Safety Report 6701097-6 (Version None)
Quarter: 2010Q2

REPORT INFORMATION
  Report Type: 
  Country: None (occurrence: None)
  Receive Date: 20100428
  Receipt Date: 20100416
  Transmission Date: 20101027
  Serious: Yes (Other)
  Sender: FDA-Public Use
  Company Number: US-ELI_LILLY_AND_COMPANY-US201003005366

PATIENT
  Age: 49 Year
  Sex: Female
  Weight: 77.098 kg

DRUGS (5)
  1. CYMBALTA [Suspect]
     Indication: DEPRESSION
     Dosage: 30 MG, DAILY (1/D)
     Dates: start: 20091101, end: 20091101
  2. CYMBALTA [Suspect]
     Dosage: 60 MG, UNK
     Dates: start: 20091101, end: 20100101
  3. ACIPHEX [Concomitant]
  4. LUNESTA [Concomitant]
     Indication: INSOMNIA
  5. CARISOPRODOL [Concomitant]
     Indication: MUSCLE TIGHTNESS

REACTIONS (4)
  - ALANINE AMINOTRANSFERASE INCREASED [None]
  - ASPARTATE AMINOTRANSFERASE INCREASED [None]
  - BLOOD ALKALINE PHOSPHATASE INCREASED [None]
  - BLOOD LACTATE DEHYDROGENASE INCREASED [None]
